FAERS Safety Report 8034608-1 (Version None)
Quarter: 2012Q1

REPORT INFORMATION
  Report Type: 
  Country: None (occurrence: None)
  Receive Date: 20120110
  Receipt Date: 20120104
  Transmission Date: 20120608
  Serious: Yes (Hospitalization, Other)
  Sender: FDA-Public Use
  Company Number: US-RB-036180-12

PATIENT
  Sex: Male

DRUGS (4)
  1. BUPRENORPHINE [Suspect]
     Indication: DRUG DEPENDENCE
     Dosage: 8 MG
     Route: 064
     Dates: start: 20110701, end: 20111009
  2. SUBOXONE [Suspect]
     Dosage: 24 MG DAILY
     Route: 064
     Dates: start: 20110201, end: 20110401
  3. SUBOXONE [Suspect]
     Indication: DRUG DEPENDENCE
     Dosage: 8 MG DAILY
     Route: 064
     Dates: start: 20110501, end: 20110623
  4. SUBOXONE [Suspect]
     Dosage: 12 MG DAILY
     Route: 064
     Dates: start: 20110401, end: 20110501

REACTIONS (3)
  - FOETAL EXPOSURE DURING PREGNANCY [None]
  - PREMATURE BABY [None]
  - LOW BIRTH WEIGHT BABY [None]
